FAERS Safety Report 14554964 (Version 1)
Quarter: 2018Q1

REPORT INFORMATION
  Report Type: Spontaneous
  Country: US (occurrence: US)
  Receive Date: 20180220
  Receipt Date: 20180220
  Transmission Date: 20180509
  Serious: No
  Sender: FDA-Public Use
  Company Number: US-TAIHO ONCOLOGY INC-EU-2018-00200

PATIENT
  Sex: Female

DRUGS (32)
  1. FERROUS SULFATE. [Concomitant]
     Active Substance: FERROUS SULFATE
     Dosage: NI
  2. OMEPRAZOLE. [Concomitant]
     Active Substance: OMEPRAZOLE
     Dosage: NI
  3. SPIRONOLACTONE. [Concomitant]
     Active Substance: SPIRONOLACTONE
     Dosage: NI
  4. ONDANSETRON [Concomitant]
     Active Substance: ONDANSETRON
     Dosage: NI
  5. PEG [Concomitant]
     Active Substance: POLYETHYLENE GLYCOLS
     Dosage: NI
  6. ACETYLSALICYLIC ACID [Concomitant]
     Active Substance: ASPIRIN
     Dosage: NI
  7. LEVEMIR [Concomitant]
     Active Substance: INSULIN DETEMIR
     Dosage: NI
  8. MORPHINE [Concomitant]
     Active Substance: MORPHINE
     Dosage: NI
  9. ASCORBIC ACID/BIOFLAVONOIDS/ROSA CANINA [Concomitant]
     Dosage: NI
  10. CALCIUM [Concomitant]
     Active Substance: CALCIUM
     Dosage: NI
  11. ROBAFEN [Concomitant]
     Active Substance: DEXTROMETHORPHAN HYDROBROMIDE\GUAIFENESIN
     Dosage: NI
  12. LORATADINE. [Concomitant]
     Active Substance: LORATADINE
     Dosage: NI
  13. METHADONE [Concomitant]
     Active Substance: METHADONE HYDROCHLORIDE
     Dosage: NI
  14. CALAZIME [Concomitant]
     Dosage: NI
  15. PARACETAMOL [Concomitant]
     Active Substance: ACETAMINOPHEN
     Dosage: NI
  16. OXYCODONE [Concomitant]
     Active Substance: OXYCODONE
     Dosage: NI
  17. LIDOCAINE. [Concomitant]
     Active Substance: LIDOCAINE
     Dosage: NI
  18. LISINOPRIL. [Concomitant]
     Active Substance: LISINOPRIL
     Dosage: NI
  19. PROCHLORPERAZINE. [Concomitant]
     Active Substance: PROCHLORPERAZINE
     Dosage: NI
  20. CLOTRIMAZOLE. [Concomitant]
     Active Substance: CLOTRIMAZOLE
     Dosage: NI
  21. DILTIAZEM. [Concomitant]
     Active Substance: DILTIAZEM
     Dosage: NI
  22. MILK OF MAGNESIA [Concomitant]
     Active Substance: MAGNESIUM HYDROXIDE
     Dosage: NI
  23. LONSURF [Suspect]
     Active Substance: TIPIRACIL HYDROCHLORIDE\TRIFLURIDINE
     Indication: COLON CANCER
     Route: 048
     Dates: start: 20171204
  24. BUPROPION. [Concomitant]
     Active Substance: BUPROPION
     Dosage: NI
  25. GABAPENTIN. [Concomitant]
     Active Substance: GABAPENTIN
     Dosage: NI
  26. PROAIR HFA [Concomitant]
     Active Substance: ALBUTEROL SULFATE
     Dosage: NI
  27. DONEPEZIL. [Concomitant]
     Active Substance: DONEPEZIL
     Dosage: NI
  28. JANUVIA [Concomitant]
     Active Substance: SITAGLIPTIN PHOSPHATE
     Dosage: NI
  29. OXYBUTYNIN. [Concomitant]
     Active Substance: OXYBUTYNIN CHLORIDE
     Dosage: NI
  30. SENNA ALEXANDRINA [Concomitant]
     Active Substance: SENNA LEAF
     Dosage: NI
  31. JANTOVEN [Concomitant]
     Active Substance: WARFARIN SODIUM
     Dosage: NI
  32. LOPERAMIDE [Concomitant]
     Active Substance: LOPERAMIDE
     Dosage: NI

REACTIONS (1)
  - Fatigue [Unknown]

NARRATIVE: CASE EVENT DATE: 2017
